FAERS Safety Report 14032899 (Version 1)
Quarter: 2017Q4

REPORT INFORMATION
  Report Type: Spontaneous
  Country: US (occurrence: US)
  Receive Date: 20171002
  Receipt Date: 20171002
  Transmission Date: 20180321
  Serious: Yes (Hospitalization, Other)
  Sender: FDA-Public Use
  Company Number: US-TEVA-811045USA

PATIENT
  Age: 71 Year
  Sex: Female

DRUGS (11)
  1. VENLAFAXINE [Interacting]
     Active Substance: VENLAFAXINE HYDROCHLORIDE
     Dosage: 300 MILLIGRAM DAILY; DAILY
     Route: 048
  2. IDELALISIB [Interacting]
     Active Substance: IDELALISIB
     Indication: B-CELL LYMPHOMA
     Route: 048
  3. LABETALOL [Concomitant]
     Active Substance: LABETALOL\LABETALOL HYDROCHLORIDE
     Route: 048
  4. GABAPENTIN. [Concomitant]
     Active Substance: GABAPENTIN
     Route: 048
  5. DIAZEPAM. [Interacting]
     Active Substance: DIAZEPAM
     Indication: ANXIETY
     Dosage: 5 MILLIGRAM DAILY; DAILY
     Route: 048
  6. BUPROPION. [Concomitant]
     Active Substance: BUPROPION
     Dosage: 150 MILLIGRAM DAILY; DAILY
     Route: 048
  7. FISH OIL [Concomitant]
     Active Substance: FISH OIL
     Route: 048
  8. DIAZEPAM. [Suspect]
     Active Substance: DIAZEPAM
     Indication: ANXIETY
     Dosage: PRN; INCREASED FROM 5 MG DAILY ONE MONTH PRIOR
     Route: 048
  9. FLUTICASONE PROPIONATE. [Concomitant]
     Active Substance: FLUTICASONE PROPIONATE
     Route: 045
  10. LEVOTHYROXINE SODIUM. [Concomitant]
     Active Substance: LEVOTHYROXINE SODIUM
     Dosage: 100 MICROGRAM DAILY; DAILY
     Route: 048
  11. QUETIAPINE FUMARATE. [Interacting]
     Active Substance: QUETIAPINE FUMARATE
     Dosage: 300 MILLIGRAM DAILY; QHS
     Route: 048

REACTIONS (3)
  - Encephalopathy [Recovered/Resolved]
  - Respiratory failure [Recovered/Resolved]
  - Drug interaction [Recovered/Resolved]
